FAERS Safety Report 9719118 (Version 2)
Quarter: 2014Q1

REPORT INFORMATION
  Report Type: Spontaneous
  Country: AT (occurrence: AT)
  Receive Date: 20131127
  Receipt Date: 20140207
  Transmission Date: 20141002
  Serious: Yes (Hospitalization)
  Sender: FDA-Public Use
  Company Number: AT-GILEAD-2013-0088808

PATIENT
  Age: 66 Year
  Sex: Female

DRUGS (15)
  1. RANOLAZINE [Suspect]
     Indication: ANGINA PECTORIS
     Dosage: 375 MG, BID
     Route: 065
  2. RANOLAZINE [Suspect]
     Dosage: 500 MG, BID
     Dates: start: 201302
  3. RANOLAZINE [Suspect]
     Dosage: 750 MG, QD
     Dates: start: 201205, end: 201304
  4. NICORANDIL [Concomitant]
     Indication: ANGINA PECTORIS
     Dosage: 20 MG, BID
  5. PANTOPRAZOL [Concomitant]
     Indication: ANGINA PECTORIS
     Dosage: 40 MG, QD
  6. METOPROLOL [Concomitant]
     Indication: ANGINA PECTORIS
     Dosage: 47.5 MG, QD
  7. PRAVASTATIN [Concomitant]
     Indication: ANGINA PECTORIS
     Dosage: 40 MG, QD
  8. CLOPIDOGREL [Concomitant]
     Indication: ANGINA PECTORIS
     Dosage: 75 MG, QD
  9. TRAZODONE [Concomitant]
     Indication: ANGINA PECTORIS
     Dosage: 150 MG, UNK
  10. CITALOPRAM [Concomitant]
     Indication: ANGINA PECTORIS
  11. URSODEOXYCHOLIC ACID [Concomitant]
     Indication: ANGINA PECTORIS
     Dosage: 250 MG, BID
  12. NITRO                              /00003201/ [Concomitant]
     Indication: ANGINA PECTORIS
     Dosage: UNK, PRN
  13. LEVOTHYROXIN [Concomitant]
     Indication: ANGINA PECTORIS
     Dosage: 160 ?G, QD
  14. INSULIN [Concomitant]
     Indication: ANGINA PECTORIS
  15. SPIRONOLACTONE [Concomitant]
     Dosage: 50 MG, QD

REACTIONS (1)
  - Transaminases increased [Recovering/Resolving]
